FAERS Safety Report 8999097 (Version 1)
Quarter: 2013Q1

REPORT INFORMATION
  Report Type: Spontaneous
  Country: FR (occurrence: FR)
  Receive Date: 20130103
  Receipt Date: 20130103
  Transmission Date: 20140127
  Serious: Yes (Hospitalization)
  Sender: FDA-Public Use
  Company Number: FR-JNJFOC-20130100549

PATIENT
  Age: 74 Year
  Sex: Male

DRUGS (7)
  1. XARELTO [Suspect]
     Indication: KNEE ARTHROPLASTY
     Route: 048
     Dates: start: 20121016, end: 20121110
  2. XARELTO [Suspect]
     Indication: THROMBOSIS PROPHYLAXIS
     Route: 048
     Dates: start: 20121016, end: 20121110
  3. SIMVASTATIN [Concomitant]
     Route: 065
  4. LERCAN [Concomitant]
     Route: 065
  5. INIPOMP [Concomitant]
     Route: 065
  6. DAFALGAN [Concomitant]
     Route: 065
  7. HYPERIUM [Concomitant]
     Route: 065

REACTIONS (4)
  - Subdural haematoma [Recovering/Resolving]
  - Hemiparesis [Recovering/Resolving]
  - Headache [Recovering/Resolving]
  - Hypertension [Recovering/Resolving]
